FAERS Safety Report 9752464 (Version 1)
Quarter: 2013Q4

REPORT INFORMATION
  Report Type: Report from Study
  Country: CA (occurrence: CA)
  Receive Date: 20131213
  Receipt Date: 20131213
  Transmission Date: 20140711
  Serious: Yes (Other)
  Sender: FDA-Public Use
  Company Number: CA-JNJFOC-20131204581

PATIENT
  Sex: Female
  Weight: 89 kg

DRUGS (5)
  1. REMICADE [Suspect]
     Indication: CROHN^S DISEASE
     Dosage: 11TH INFUSION
     Route: 042
     Dates: start: 20131120
  2. REMICADE [Suspect]
     Indication: CROHN^S DISEASE
     Route: 042
     Dates: start: 20120718
  3. IMURAN [Concomitant]
     Indication: CROHN^S DISEASE
     Route: 048
  4. SPIRONOLACTONE [Concomitant]
     Indication: OVARIAN CYST
     Route: 065
  5. LOMOTIL [Concomitant]
     Route: 065

REACTIONS (3)
  - Trigeminal neuralgia [Not Recovered/Not Resolved]
  - Nasopharyngitis [Recovered/Resolved]
  - Sinus congestion [Recovered/Resolved]
